FAERS Safety Report 9352772 (Version 1)
Quarter: 2013Q2

REPORT INFORMATION
  Report Type: Spontaneous
  Country: US (occurrence: None)
  Receive Date: 20130614
  Receipt Date: 20130614
  Transmission Date: 20140414
  Serious: Yes (Other)
  Sender: FDA-Public Use
  Company Number: None

PATIENT
  Age: 50 Year
  Sex: Female

DRUGS (1)
  1. GAVILYTE - C TM [Suspect]
     Indication: COLONOSCOPY
     Dosage: 2/3, TWO HOURS
     Route: 048
     Dates: start: 20130612, end: 20130612

REACTIONS (6)
  - Headache [None]
  - Chills [None]
  - Vomiting [None]
  - Nausea [None]
  - Blood pressure increased [None]
  - Blood glucose decreased [None]
